FAERS Safety Report 4309051-9 (Version None)
Quarter: 2004Q1

REPORT INFORMATION
  Report Type: 
  Country: None (occurrence: None)
  Receive Date: 20040302
  Receipt Date: 20040225
  Transmission Date: 20041129
  Serious: Yes (Other)
  Sender: FDA-Public Use
  Company Number: 200410610EU

PATIENT
  Age: 31 Year
  Sex: Female

DRUGS (2)
  1. LANTUS [Suspect]
     Indication: DIABETES MELLITUS
     Dates: start: 20030228, end: 20030331
  2. NOVORAPID [Concomitant]
     Dosage: DOSE UNIT: INTERNATIONAL UNITS PER MILLILITRE

REACTIONS (6)
  - ARTHRALGIA [None]
  - ERYTHEMA NODOSUM [None]
  - JOINT SWELLING [None]
  - SARCOIDOSIS [None]
  - SYNOVITIS [None]
  - TENDON DISORDER [None]
